FAERS Safety Report 19462683 (Version 1)
Quarter: 2021Q2

REPORT INFORMATION
  Report Type: Report from Study
  Country: CA (occurrence: CA)
  Receive Date: 20210625
  Receipt Date: 20210625
  Transmission Date: 20210717
  Serious: Yes (Hospitalization)
  Sender: FDA-Public Use
  Company Number: CA-PFIZER INC-2021747308

PATIENT
  Sex: Male

DRUGS (9)
  1. RITUXIMAB. [Suspect]
     Active Substance: RITUXIMAB
     Indication: INTERSTITIAL LUNG DISEASE
  2. ACETAMINOPHEN. [Concomitant]
     Active Substance: ACETAMINOPHEN
     Indication: PREMEDICATION
     Dosage: UNK
     Route: 048
  3. SULFATRIM [Concomitant]
     Active Substance: SULFAMETHOXAZOLE\TRIMETHOPRIM
     Dosage: UNK
  4. PANTOLOC [PANTOPRAZOLE] [Concomitant]
     Active Substance: PANTOPRAZOLE SODIUM
     Dosage: UNK
  5. RITUXIMAB. [Suspect]
     Active Substance: RITUXIMAB
     Indication: RHEUMATOID ARTHRITIS
     Dosage: 1000 MG, EVERY 15 DAYS
     Route: 042
  6. AZATHIOPRINE. [Concomitant]
     Active Substance: AZATHIOPRINE
     Indication: PREMEDICATION
     Route: 048
  7. CELEBREX [Concomitant]
     Active Substance: CELECOXIB
     Dosage: UNK
  8. RITUXIMAB. [Suspect]
     Active Substance: RITUXIMAB
     Indication: ANTISYNTHETASE SYNDROME
  9. METHYLPREDNISOLONE SODIUM SUCCINATE. [Concomitant]
     Active Substance: METHYLPREDNISOLONE SODIUM SUCCINATE
     Indication: PREMEDICATION
     Dosage: UNK
     Route: 042

REACTIONS (2)
  - Pain [Unknown]
  - Gait disturbance [Unknown]
